FAERS Safety Report 4751661-9 (Version None)
Quarter: 2005Q3

REPORT INFORMATION
  Report Type: 
  Country: None (occurrence: None)
  Receive Date: 20050822
  Receipt Date: 20050816
  Transmission Date: 20060218
  Serious: Yes (Hospitalization)
  Sender: FDA-Public Use
  Company Number: 200510510BNE

PATIENT
  Age: 56 Year
  Sex: Male

DRUGS (11)
  1. AVELOX [Suspect]
     Indication: LOWER RESPIRATORY TRACT INFECTION
     Dosage: 400 MG, TOTAL DAILY, ORAL
     Route: 048
     Dates: start: 20050706, end: 20050711
  2. ALBUTEROL SULFATE HFA [Concomitant]
  3. DOSULEPIN [Concomitant]
  4. TINZAPARIN [Concomitant]
  5. FLUTICASONE [Concomitant]
  6. CARBOCISTEINE [Concomitant]
  7. PARACETAMOL [Concomitant]
  8. IBUPROFEN [Concomitant]
  9. CODEINE [Concomitant]
  10. CYCLIZINE [Concomitant]
  11. MORPHINE [Concomitant]

REACTIONS (1)
  - DIARRHOEA HAEMORRHAGIC [None]
